FAERS Safety Report 5317523-3 (Version None)
Quarter: 2007Q2

REPORT INFORMATION
  Report Type: 
  Country: None (occurrence: None)
  Receive Date: 20070507
  Receipt Date: 20070427
  Transmission Date: 20071010
  Serious: Yes (Hospitalization)
  Sender: FDA-Public Use
  Company Number: PHHO2007BE07301

PATIENT
  Age: 59 Year
  Sex: Female
  Weight: 55.4 kg

DRUGS (16)
  1. CYA + STEROID FREE VS RAD + ERL [Suspect]
     Indication: RENAL TRANSPLANT
     Dosage: 1440 MG/DAY
     Route: 048
     Dates: start: 20060723
  2. CYA + STEROID FREE VS RAD + ERL [Suspect]
     Dosage: 720 MG/DAY
     Route: 048
  3. CYA + STEROID FREE VS RAD + ERL [Suspect]
     Dosage: 1080 MG/DAY
     Route: 048
     Dates: start: 20070317, end: 20070318
  4. CYA + STEROID FREE VS RAD + ERL [Suspect]
     Dosage: 720 MG/DAY
     Route: 048
  5. NEORAL [Suspect]
     Indication: RENAL TRANSPLANT
     Dosage: 175 MG/DAY
     Route: 048
     Dates: start: 20060723
  6. NEORAL [Suspect]
     Dosage: 185 MG/DAY
     Route: 048
  7. EMCONCOR [Concomitant]
  8. PERINDOPRIL ERBUMINE [Concomitant]
  9. COZAAR [Concomitant]
  10. FUROSEMIDE [Concomitant]
  11. MOXON [Concomitant]
  12. LESCOL [Concomitant]
  13. ZANTAC [Concomitant]
  14. ZOLPIDEM TARTRATE [Concomitant]
  15. NASONEX [Concomitant]
  16. NEORECORMON [Concomitant]

REACTIONS (18)
  - ANOREXIA [None]
  - CHRONIC SINUSITIS [None]
  - DIARRHOEA [None]
  - EAR PAIN [None]
  - FACIAL PAIN [None]
  - HEADACHE [None]
  - MALAISE [None]
  - NAUSEA [None]
  - OTITIS MEDIA [None]
  - PANCYTOPENIA [None]
  - PYREXIA [None]
  - RENAL IMPAIRMENT [None]
  - RHINORRHOEA [None]
  - SECRETION DISCHARGE [None]
  - SINUSITIS [None]
  - STREPTOCOCCAL INFECTION [None]
  - UPPER RESPIRATORY TRACT INFECTION [None]
  - VOMITING [None]
